FAERS Safety Report 24255279 (Version 1)
Quarter: 2024Q3

REPORT INFORMATION
  Report Type: Spontaneous
  Country: US (occurrence: None)
  Receive Date: 20240826
  Receipt Date: 20240826
  Transmission Date: 20241017
  Serious: Yes (Hospitalization)
  Sender: Public
  Company Number: None

PATIENT
  Sex: Male

DRUGS (1)
  1. RYDAPT [Suspect]
     Active Substance: MIDOSTAURIN
     Indication: Acute leukaemia
     Dosage: FREQ: TAKE 2 CAPSULES BY MOUTH TWICE DAILY. TAKE WHOLE WITH WATER AND A MEAL.
     Route: 048

REACTIONS (1)
  - Chemotherapy [None]
